FAERS Safety Report 4645961-0 (Version None)
Quarter: 2005Q2

REPORT INFORMATION
  Report Type: 
  Country: None (occurrence: None)
  Receive Date: 20050425
  Receipt Date: 20050413
  Transmission Date: 20051028
  Serious: Yes (Other)
  Sender: FDA-Public Use
  Company Number: 200511001BCC

PATIENT
  Age: 60 Year
  Sex: Male
  Weight: 69.4003 kg

DRUGS (2)
  1. ALEVE [Suspect]
     Indication: ARTHRITIS
     Dosage: 220 MG, QD, ORAL
     Route: 048
  2. BISOPROLOL FUMARATE [Concomitant]

REACTIONS (3)
  - BLOOD PRESSURE INCREASED [None]
  - INJURY [None]
  - THERAPY NON-RESPONDER [None]
